FAERS Safety Report 10186367 (Version 1)
Quarter: 2014Q2

REPORT INFORMATION
  Report Type: Spontaneous
  Country: US (occurrence: US)
  Receive Date: 20140521
  Receipt Date: 20140521
  Transmission Date: 20141212
  Serious: No
  Sender: FDA-Public Use
  Company Number: US-ASTRAZENECA-2014SE02568

PATIENT
  Age: 73 Year
  Sex: Female
  Weight: 59.4 kg

DRUGS (4)
  1. PULMICORT FLEXHALER [Suspect]
     Indication: ASTHMA
     Route: 055
     Dates: start: 20140106
  2. SYMBICORT [Suspect]
     Indication: ASTHMA
     Dosage: 160/4.5 MCG, 2 PUFFS, BID
     Route: 055
     Dates: end: 20140106
  3. SYMBICORT [Suspect]
     Indication: ASTHMA
     Dosage: 160/4.5 MCG, AS REQUIRED
     Route: 055
  4. ADVIL (OTC) [Concomitant]
     Indication: PAIN
     Dosage: PRN

REACTIONS (4)
  - Ocular rosacea [Unknown]
  - Oral herpes [Unknown]
  - Pain [Unknown]
  - Intentional product misuse [Unknown]
